FAERS Safety Report 13298168 (Version 1)
Quarter: 2017Q1

REPORT INFORMATION
  Report Type: Spontaneous
  Country: SY (occurrence: SY)
  Receive Date: 20170306
  Receipt Date: 20170306
  Transmission Date: 20170428
  Serious: Yes (Life-Threatening, Hospitalization, Other)
  Sender: FDA-Public Use
  Company Number: SY-FRESENIUS KABI-FK201701796

PATIENT
  Age: 15 Year
  Sex: Female

DRUGS (1)
  1. LIDOCAINE/EPINEPHRINE (MANUFACTURER UNKNOWN) [Suspect]
     Active Substance: EPINEPHRINE BITARTRATE\LIDOCAINE HYDROCHLORIDE
     Indication: DENTAL LOCAL ANAESTHESIA
     Route: 013

REACTIONS (4)
  - Status epilepticus [Recovered/Resolved]
  - Injection site haematoma [Recovered/Resolved]
  - Incorrect route of drug administration [Recovered/Resolved]
  - Coma [Recovered/Resolved]
